FAERS Safety Report 8376201-7 (Version None)
Quarter: 2012Q2

REPORT INFORMATION
  Report Type: 
  Country: None (occurrence: None)
  Receive Date: 20120522
  Receipt Date: 20120516
  Transmission Date: 20120825
  Serious: Yes (Hospitalization, Other)
  Sender: FDA-Public Use
  Company Number: EC-BAYER-2012-043856

PATIENT
  Age: 36 Year
  Sex: Female
  Weight: 41.723 kg

DRUGS (1)
  1. YAZ [Suspect]
     Indication: CONTRACEPTION
     Dosage: DAILY DOSE 3 MG
     Route: 048
     Dates: start: 20101101, end: 20120401

REACTIONS (7)
  - SYNCOPE [None]
  - OEDEMA PERIPHERAL [None]
  - DYSPNOEA EXERTIONAL [None]
  - COUGH [None]
  - DYSPNOEA [None]
  - HEADACHE [None]
  - PULMONARY EMBOLISM [None]
